FAERS Safety Report 6412469-1 (Version None)
Quarter: 2009Q4

REPORT INFORMATION
  Report Type: 
  Country: None (occurrence: None)
  Receive Date: 20091023
  Receipt Date: 20091013
  Transmission Date: 20100525
  Serious: Yes (Hospitalization)
  Sender: FDA-Public Use
  Company Number: FR-ABBOTT-09P-056-0602508-00

PATIENT
  Age: 64 Year
  Sex: Female

DRUGS (7)
  1. HUMIRA [Suspect]
     Indication: CROHN'S DISEASE
     Route: 058
     Dates: start: 20080601, end: 20090801
  2. METHOTREXATE [Concomitant]
     Indication: DRUG USE FOR UNKNOWN INDICATION
     Route: 048
     Dates: start: 20080601, end: 20080801
  3. CORTANCYL [Concomitant]
     Indication: DRUG USE FOR UNKNOWN INDICATION
     Route: 048
  4. PENTASA [Concomitant]
     Indication: CROHN'S DISEASE
     Route: 048
  5. LERCANIDIPINE [Concomitant]
     Indication: DRUG USE FOR UNKNOWN INDICATION
  6. BETASERC [Concomitant]
     Indication: DRUG USE FOR UNKNOWN INDICATION
  7. NEXIUM [Concomitant]
     Indication: DRUG USE FOR UNKNOWN INDICATION

REACTIONS (2)
  - HYPERKERATOSIS [None]
  - PERIPHERAL SENSORY NEUROPATHY [None]
